FAERS Safety Report 19266886 (Version 1)
Quarter: 2021Q2

REPORT INFORMATION
  Report Type: Spontaneous
  Country: DE (occurrence: DE)
  Receive Date: 20210518
  Receipt Date: 20210518
  Transmission Date: 20210717
  Serious: Yes (Hospitalization, Other)
  Sender: FDA-Public Use
  Company Number: DE-AUROBINDO-AUR-APL-2021-019811

PATIENT
  Age: 61 Year
  Sex: Female
  Weight: 78 kg

DRUGS (2)
  1. LETROZOLE. [Suspect]
     Active Substance: LETROZOLE
     Indication: BREAST CANCER
     Dosage: 2 MILLIGRAM (ON 05/MAR/2021, RECEIVED LAST APPLICATION PRIOR EVENT WAS 2.5 MG)
     Route: 065
     Dates: start: 20191121
  2. BEVACIZUMAB. [Suspect]
     Active Substance: BEVACIZUMAB
     Indication: BREAST CANCER
     Dosage: 1170 MILLIGRAM(ON 12/FEB/2021, RECEIVED LAST APPLICATION PRIOR EVENT WAS 1170 MG)
     Route: 042
     Dates: start: 20200102, end: 20210212

REACTIONS (1)
  - Acute kidney injury [Recovered/Resolved]

NARRATIVE: CASE EVENT DATE: 20210305
